FAERS Safety Report 4768284-8 (Version None)
Quarter: 2005Q3

REPORT INFORMATION
  Report Type: 
  Country: None (occurrence: None)
  Receive Date: 20050908
  Receipt Date: 20050518
  Transmission Date: 20060218
  Serious: No
  Sender: FDA-Public Use
  Company Number: A03200501501

PATIENT
  Age: 47 Year
  Sex: Male
  Weight: 86.1834 kg

DRUGS (7)
  1. ELOXATIN [Suspect]
     Indication: COLON CANCER
     Dosage: 168 MG, OTHER - INTRAVENOUS NOS
     Route: 042
     Dates: start: 20050727, end: 20050727
  2. LEUCOVORIN [Concomitant]
  3. FLUOROURACIL [Concomitant]
  4. ONDANSETRON HYDROCHLORIDE [Concomitant]
  5. DEXAMETHASONE [Concomitant]
  6. CALCIUM GLUCONATE [Concomitant]
  7. MAGNESIUM SULFATE [Concomitant]

REACTIONS (2)
  - PRURITUS GENERALISED [None]
  - SALIVARY GLAND DISORDER [None]
